FAERS Safety Report 9005333 (Version 2)
Quarter: 2013Q1

REPORT INFORMATION
  Report Type: Spontaneous
  Country: US (occurrence: US)
  Receive Date: 20130108
  Receipt Date: 20130208
  Transmission Date: 20140127
  Serious: Yes (Death, Hospitalization)
  Sender: FDA-Public Use
  Company Number: US-PFIZER INC-2013002578

PATIENT
  Age: 52 Year
  Sex: Male

DRUGS (19)
  1. AROMASIN [Suspect]
     Indication: BREAST CANCER MALE
     Dosage: 25 MG, DAILY
     Route: 048
     Dates: start: 20120831
  2. AROMASIN [Suspect]
     Dosage: 25 MG, UNK
     Dates: start: 20120919, end: 20121015
  3. ADRIAMYCIN [Suspect]
     Indication: BREAST CANCER MALE
     Dosage: UNK
     Dates: end: 20090614
  4. AFINITOR [Suspect]
     Indication: BREAST CANCER MALE
     Dosage: 5 MG, DAILY
     Dates: start: 20120831
  5. CYTOXAN [Suspect]
     Indication: BREAST CANCER MALE
     Dosage: UNK
     Dates: end: 20090614
  6. TAXOL [Suspect]
     Indication: BREAST CANCER MALE
     Dosage: UNK, WEEKLY
     Dates: end: 20091223
  7. TAMOXIFEN [Suspect]
     Indication: BREAST CANCER MALE
     Dosage: 20 MG, DAILY
     Dates: start: 20100330, end: 201011
  8. ZOMETA [Suspect]
     Indication: BREAST CANCER MALE
     Dosage: UNK
     Dates: start: 201010, end: 201103
  9. LUPRON [Suspect]
     Indication: BREAST CANCER MALE
     Dosage: UNK
     Dates: start: 20101206, end: 201103
  10. ABRAXANE [Suspect]
     Indication: BREAST CANCER MALE
     Dosage: UNK
     Dates: start: 201107, end: 201107
  11. AVASTIN [Suspect]
     Indication: BREAST CANCER MALE
     Dosage: UNK
     Dates: start: 201107, end: 201107
  12. HALAVEN [Suspect]
     Indication: BREAST CANCER MALE
     Dosage: 1 SINGLE DOSE
     Dates: start: 20120326, end: 20120326
  13. XELODA [Suspect]
     Indication: BREAST CANCER MALE
     Dosage: 1 G, 2X/DAY, 2 WEEK ON / 1 WEEK OFF
     Dates: start: 20120522, end: 20120830
  14. OXYCODONE [Concomitant]
     Dosage: 5MG, 1-2 EVERY 4 HRS
  15. COMPAZINE [Concomitant]
     Indication: NAUSEA
     Dosage: 10 MG, EVERY 6 HOURS, AS NEEDED
  16. TUSSIONEX [Concomitant]
     Indication: COUGH
     Dosage: UNK, AS NEEDED
  17. VITAMIN D [Concomitant]
     Indication: VITAMIN D DEFICIENCY
     Dosage: 4000 IU, DAILY
  18. LASIX [Concomitant]
     Dosage: 20 MG, DAILY
  19. SYMBICORT [Concomitant]
     Dosage: 160/4.5, 2X/DAY

REACTIONS (4)
  - Disease progression [Fatal]
  - Breast cancer male [Fatal]
  - Dry skin [Unknown]
  - Off label use [Unknown]
